FAERS Safety Report 24767246 (Version 1)
Quarter: 2024Q4

REPORT INFORMATION
  Report Type: Spontaneous
  Country: US (occurrence: None)
  Receive Date: 20241220
  Receipt Date: 20241220
  Transmission Date: 20250115
  Serious: Yes (Other)
  Sender: Public
  Company Number: None

PATIENT
  Age: 74 Year
  Sex: Female
  Weight: 87.3 kg

DRUGS (9)
  1. MOUNJARO [Suspect]
     Active Substance: TIRZEPATIDE
     Indication: Obesity
     Dosage: 7.5 MG ONCE WEEKLY SUBCUTANEOUS
     Route: 058
     Dates: start: 20241216, end: 20241219
  2. TACROLIMUS [Suspect]
     Active Substance: TACROLIMUS
     Indication: Renal transplant
     Dosage: 1 MG TWICE A DAY ORAL ?
     Route: 048
     Dates: start: 20230209
  3. PREDNISONE [Concomitant]
     Active Substance: PREDNISONE
     Dates: start: 20230209
  4. SIMVASTATIN [Concomitant]
     Active Substance: SIMVASTATIN
     Dates: start: 20240918
  5. LISINOPRIL [Concomitant]
     Active Substance: LISINOPRIL
     Dates: start: 20240304
  6. OMEPRAZOLE [Concomitant]
     Active Substance: OMEPRAZOLE
     Dates: start: 20241024
  7. OMEPRAZOLE [Concomitant]
     Active Substance: OMEPRAZOLE
     Dates: start: 20240304, end: 20241007
  8. Mounjaro 5 mg/0.5 mL [Concomitant]
     Dates: start: 20241009, end: 20241202
  9. MYCOPHENOLIC ACID [Suspect]
     Active Substance: MYCOPHENOLIC ACID

REACTIONS (4)
  - Nausea [None]
  - Decreased appetite [None]
  - Hiatus hernia [None]
  - Therapy cessation [None]

NARRATIVE: CASE EVENT DATE: 20241217
